FAERS Safety Report 8621286-3 (Version None)
Quarter: 2012Q3

REPORT INFORMATION
  Report Type: 
  Country: None (occurrence: None)
  Receive Date: 20120824
  Receipt Date: 20120810
  Transmission Date: 20120928
  Serious: Yes (Other)
  Sender: FDA-Public Use
  Company Number: FR-VERTEX PHARMACEUTICAL INC.-2012-019949

PATIENT
  Sex: Male

DRUGS (3)
  1. INCIVEK [Suspect]
     Indication: PRODUCT USED FOR UNKNOWN INDICATION
     Dosage: UNK
     Route: 048
  2. INTERFERON ALFA [Concomitant]
  3. RIBAVIRINE [Concomitant]
     Dosage: 200 MG, UNK

REACTIONS (6)
  - TUBERCULOSIS [None]
  - URINARY TRACT INFECTION [None]
  - CRYSTAL URINE PRESENT [None]
  - WEIGHT DECREASED [None]
  - URINE COLOUR ABNORMAL [None]
  - THYROID DISORDER [None]
